FAERS Safety Report 16243437 (Version 3)
Quarter: 2019Q3

REPORT INFORMATION
  Report Type: Spontaneous
  Country: US (occurrence: US)
  Receive Date: 20190426
  Receipt Date: 20190819
  Transmission Date: 20191004
  Serious: Yes (Life-Threatening, Hospitalization, Other)
  Sender: FDA-Public Use
  Company Number: US-PFIZER INC-2019150380

PATIENT
  Age: 61 Year
  Sex: Male
  Weight: 68.27 kg

DRUGS (2)
  1. LYRICA [Suspect]
     Active Substance: PREGABALIN
     Dosage: 150 MG, 3X/DAY
     Dates: end: 20190307
  2. LYRICA [Suspect]
     Active Substance: PREGABALIN
     Indication: NEUROPATHY PERIPHERAL
     Dosage: 50 MG, 3X/DAY
     Route: 048
     Dates: start: 2016, end: 20190219

REACTIONS (14)
  - Amnesia [Unknown]
  - Coma [Unknown]
  - Cardiac disorder [Unknown]
  - Jaw fracture [Unknown]
  - Gait disturbance [Unknown]
  - Insomnia [Unknown]
  - Burning sensation [Unknown]
  - Brain injury [Unknown]
  - Road traffic accident [Not Recovered/Not Resolved]
  - Cerebrovascular accident [Unknown]
  - Upper limb fracture [Unknown]
  - Multiple fractures [Unknown]
  - Eye injury [Unknown]
  - Nerve injury [Unknown]

NARRATIVE: CASE EVENT DATE: 20181120
